FAERS Safety Report 9736347 (Version 1)
Quarter: 2013Q4

REPORT INFORMATION
  Report Type: Spontaneous
  Country: MX (occurrence: MX)
  Receive Date: 20131206
  Receipt Date: 20131206
  Transmission Date: 20140711
  Serious: Yes (Other)
  Sender: FDA-Public Use
  Company Number: MX-ROCHE-1310428

PATIENT
  Age: 57 Year
  Sex: 0

DRUGS (5)
  1. AVASTIN [Suspect]
     Indication: BREAST CANCER METASTATIC
     Route: 065
     Dates: start: 20090609, end: 20090923
  2. AVASTIN [Suspect]
     Route: 065
     Dates: start: 20100215
  3. XELODA [Suspect]
     Indication: BREAST CANCER METASTATIC
     Route: 065
     Dates: start: 20100215
  4. CARBOPLATINO [Concomitant]
     Indication: BREAST CANCER METASTATIC
     Route: 065
     Dates: start: 20090609, end: 20090923
  5. DOCETAXEL [Concomitant]
     Indication: BREAST CANCER METASTATIC
     Route: 065
     Dates: start: 20090609, end: 20090923

REACTIONS (2)
  - Toxicity to various agents [Unknown]
  - Disease progression [Unknown]
